FAERS Safety Report 7210179-4 (Version None)
Quarter: 2011Q1

REPORT INFORMATION
  Report Type: 
  Country: None (occurrence: None)
  Receive Date: 20110105
  Receipt Date: 20110103
  Transmission Date: 20110831
  Serious: No
  Sender: FDA-Public Use
  Company Number: US-JNJFOC-20110100353

PATIENT
  Sex: Male
  Weight: 181.44 kg

DRUGS (3)
  1. ACETAMINOPHEN [Concomitant]
     Indication: PAIN
     Route: 048
  2. UNSPECIFIED TRAMADOL WITH ACETAMINOPHEN [Concomitant]
     Indication: PAIN
     Route: 048
  3. DURAGESIC-50 [Suspect]
     Indication: PAIN
     Route: 062

REACTIONS (2)
  - PAIN [None]
  - WRONG TECHNIQUE IN DRUG USAGE PROCESS [None]
